FAERS Safety Report 7812900 (Version 2)
Quarter: 2012Q4

REPORT INFORMATION
  Report Type: 
  Country: US (occurrence: US)
  Receive Date: 20110215
  Receipt Date: 20121031
  Transmission Date: 20130627
  Serious: Yes (Hospitalization, Other)
  Sender: FDA-Public Use
  Company Number: US-ROCHE-744045

PATIENT
  Age: 21 Year
  Sex: Female
  Weight: 61.2 kg

DRUGS (2)
  1. ACCUTANE [Suspect]
     Indication: ACNE
     Route: 065
     Dates: start: 1999, end: 2002
  2. ACCUTANE [Suspect]
     Route: 065
     Dates: start: 20020426, end: 20021025

REACTIONS (6)
  - Crohn^s disease [Unknown]
  - Arthritis [Unknown]
  - Inflammatory bowel disease [Unknown]
  - Depression [Not Recovered/Not Resolved]
  - Fistula [Unknown]
  - Nausea [Unknown]
